FAERS Safety Report 25542303 (Version 1)
Quarter: 2025Q3

REPORT INFORMATION
  Report Type: Report from Study
  Country: US (occurrence: US)
  Receive Date: 20250711
  Receipt Date: 20250711
  Transmission Date: 20251020
  Serious: Yes (Hospitalization)
  Sender: ROCHE
  Company Number: US-ROCHE-10000334136

PATIENT
  Age: 23 Year
  Sex: Female

DRUGS (1)
  1. EVRYSDI [Suspect]
     Active Substance: RISDIPLAM
     Indication: Duchenne muscular dystrophy
     Route: 065

REACTIONS (2)
  - Pneumonia [Unknown]
  - Off label use [Unknown]
